FAERS Safety Report 9122382 (Version 1)
Quarter: 2013Q1

REPORT INFORMATION
  Report Type: Report from Study
  Country: CA (occurrence: CA)
  Receive Date: 20130114
  Receipt Date: 20130114
  Transmission Date: 20140127
  Serious: Yes (Hospitalization)
  Sender: FDA-Public Use
  Company Number: CA-JNJFOC-20130104275

PATIENT
  Age: 69 Year
  Sex: Female
  Weight: 70 kg

DRUGS (11)
  1. REMICADE [Suspect]
     Indication: RHEUMATOID ARTHRITIS
     Route: 042
     Dates: start: 20061204
  2. METHOTREXATE [Concomitant]
     Route: 065
  3. LEUCOVORIN CALCIUM [Concomitant]
     Route: 065
  4. OXYNEO [Concomitant]
     Route: 065
  5. SEROQUEL XR [Concomitant]
     Route: 065
  6. CRESTOR [Concomitant]
     Route: 065
  7. CITALOPRAM [Concomitant]
     Route: 065
  8. RABEPRAZOLE [Concomitant]
     Route: 065
  9. LORAZEPAM [Concomitant]
     Route: 065
  10. CELEBREX [Concomitant]
     Route: 065
  11. METOPROLOL [Concomitant]
     Route: 065

REACTIONS (3)
  - Pneumonia [Recovered/Resolved]
  - Cardiac disorder [Recovered/Resolved]
  - Asthenia [Recovered/Resolved]
